FAERS Safety Report 6274676-0 (Version None)
Quarter: 2009Q3

REPORT INFORMATION
  Report Type: 
  Country: None (occurrence: None)
  Receive Date: 20090721
  Receipt Date: 20070706
  Transmission Date: 20100115
  Serious: Yes (Congenital Anomaly, Other)
  Sender: FDA-Public Use
  Company Number: US-ASTRAZENECA-2007UW09599

PATIENT
  Age: 20748 Day
  Sex: Female
  Weight: 115.7 kg

DRUGS (9)
  1. SEROQUEL [Suspect]
     Indication: SLEEP DISORDER
     Dosage: 25 MG - 200 MG
     Route: 048
     Dates: start: 20021004
  2. SEROQUEL [Suspect]
     Route: 048
     Dates: start: 20030716, end: 20060202
  3. TRAZODONE [Concomitant]
     Indication: SLEEP DISORDER
     Dosage: 50 MG - 100 MG
     Dates: start: 19990704
  4. PAXIL [Concomitant]
     Route: 048
     Dates: start: 19990704
  5. KLONOPIN [Concomitant]
     Dates: start: 19990704
  6. LIPITOR [Concomitant]
     Dates: start: 20070122
  7. AVAPRO [Concomitant]
     Dates: start: 20070122
  8. LYRICA [Concomitant]
     Dates: start: 20070122
  9. CYMBALTA [Concomitant]
     Dates: start: 20070122

REACTIONS (4)
  - DIABETIC NEUROPATHY [None]
  - DIABETIC RETINOPATHY [None]
  - NEUROPATHY PERIPHERAL [None]
  - TYPE 2 DIABETES MELLITUS [None]
